FAERS Safety Report 9143606 (Version 1)
Quarter: 2013Q1

REPORT INFORMATION
  Report Type: Spontaneous
  Country: FR (occurrence: FR)
  Receive Date: 20130306
  Receipt Date: 20130306
  Transmission Date: 20140127
  Serious: Yes (Hospitalization)
  Sender: FDA-Public Use
  Company Number: FR-ROCHE-1198233

PATIENT
  Age: 84 Year
  Sex: Female

DRUGS (4)
  1. VITAMIN K1 [Suspect]
     Indication: PRODUCT USED FOR UNKNOWN INDICATION
     Route: 042
     Dates: start: 20130126, end: 20130127
  2. CEFTRIAXONE SODIUM [Suspect]
     Indication: LUNG DISORDER
     Route: 042
     Dates: start: 20130126, end: 20130127
  3. CALCIPARINE [Suspect]
     Indication: PROPHYLAXIS
     Route: 058
     Dates: start: 20130127, end: 20130127
  4. VOLUVEN [Suspect]
     Indication: PRODUCT USED FOR UNKNOWN INDICATION
     Route: 042
     Dates: start: 20130126, end: 20130127

REACTIONS (1)
  - Generalised erythema [Not Recovered/Not Resolved]
